FAERS Safety Report 16576802 (Version 1)
Quarter: 2019Q3

REPORT INFORMATION
  Report Type: Spontaneous
  Country: PL (occurrence: PL)
  Receive Date: 20190716
  Receipt Date: 20190716
  Transmission Date: 20191004
  Serious: Yes (Other)
  Sender: FDA-Public Use
  Company Number: PL-GLAXOSMITHKLINE-PL2019126350

PATIENT
  Age: 29 Year
  Sex: Female
  Weight: 58 kg

DRUGS (4)
  1. AMOXICILLIN TRIHYDRATE [Suspect]
     Active Substance: AMOXICILLIN
     Indication: OROPHARYNGEAL PAIN
  2. AMOXICILLIN TRIHYDRATE [Suspect]
     Active Substance: AMOXICILLIN
     Indication: PERITONSILLAR ABSCESS
  3. ZINNAT [Suspect]
     Active Substance: CEFUROXIME
     Indication: PERITONSILLAR ABSCESS
     Dosage: 500 MG, BID
     Route: 048
     Dates: start: 20161022, end: 20161024
  4. AMOXICILLIN TRIHYDRATE [Suspect]
     Active Substance: AMOXICILLIN
     Indication: PYREXIA
     Dosage: 2 G, BID
     Route: 048
     Dates: start: 20161019, end: 20161021

REACTIONS (3)
  - Lip swelling [Recovering/Resolving]
  - Ear swelling [Recovering/Resolving]
  - Urticaria [Recovering/Resolving]

NARRATIVE: CASE EVENT DATE: 20161025
